FAERS Safety Report 18696704 (Version 1)
Quarter: 2021Q1

REPORT INFORMATION
  Report Type: Spontaneous
  Country: GB (occurrence: GB)
  Receive Date: 20210104
  Receipt Date: 20210104
  Transmission Date: 20210419
  Serious: Yes (Life-Threatening, Hospitalization, Other)
  Sender: FDA-Public Use
  Company Number: GB-AMNEAL PHARMACEUTICALS-2020-AMRX-04092

PATIENT
  Age: 56 Year
  Sex: Male

DRUGS (3)
  1. NOREPINEPHRINE BITARTRATE. [Suspect]
     Active Substance: NOREPINEPHRINE BITARTRATE
     Dosage: UNK (IN THE ANTECUBITAL FOSSA AT A RATE OF 0.02 ?G/KG/MIN VIA SYRINGE DRIVER)
     Route: 065
  2. NOREPINEPHRINE BITARTRATE. [Suspect]
     Active Substance: NOREPINEPHRINE BITARTRATE
     Indication: HYPOTENSION
     Dosage: UNK (5MG)
     Route: 065
  3. RINGER LACTATE [CALCIUM CHLORIDE DIHYDRATE;POTASSIUM CHLORIDE;SODIUM C [Concomitant]
     Indication: PRODUCT USED FOR UNKNOWN INDICATION
     Dosage: UNK
     Route: 065

REACTIONS (4)
  - Accidental overdose [Unknown]
  - Cardiac arrest [Recovered/Resolved]
  - Product preparation issue [Unknown]
  - Rash macular [Unknown]
